FAERS Safety Report 6168264-4 (Version None)
Quarter: 2009Q2

REPORT INFORMATION
  Report Type: 
  Country: None (occurrence: None)
  Receive Date: 20090427
  Receipt Date: 20090421
  Transmission Date: 20091009
  Serious: Yes (Life-Threatening, Hospitalization)
  Sender: FDA-Public Use
  Company Number: FI-ASTRAZENECA-2009SE01157

PATIENT
  Age: 28128 Day
  Sex: Male
  Weight: 73 kg

DRUGS (8)
  1. PLACEBO [Suspect]
     Indication: PROSTATE CANCER
     Route: 048
     Dates: start: 20090226, end: 20090313
  2. DOCETAXEL [Suspect]
     Indication: PROSTATE CANCER
     Dosage: EVERY THREE WEEKS
     Route: 042
  3. ESOMEPRAZOLE [Suspect]
     Indication: DYSPEPSIA
     Route: 048
     Dates: start: 20090305, end: 20090319
  4. LEUPRORELIN ACETATE [Suspect]
  5. PREDNISOLONE [Concomitant]
     Route: 048
     Dates: start: 20090226
  6. ACETYLSALICYLIC ACID SRT [Concomitant]
     Indication: PROPHYLAXIS
     Route: 048
     Dates: end: 20090314
  7. QUININEMEPROBAMATE [Concomitant]
     Indication: MUSCLE SPASMS
     Route: 048
  8. PLIMAX [Concomitant]
     Route: 048

REACTIONS (2)
  - CEREBRAL INFARCTION [None]
  - INFECTION [None]
